FAERS Safety Report 12047573 (Version 1)
Quarter: 2016Q1

REPORT INFORMATION
  Report Type: Report from Study
  Country: US (occurrence: US)
  Receive Date: 20160208
  Receipt Date: 20160208
  Transmission Date: 20160526
  Serious: No
  Sender: FDA-Public Use
  Company Number: US-ABBVIE-15P-163-1385287-00

PATIENT
  Age: 41 Year
  Sex: Female

DRUGS (3)
  1. HUMIRA [Suspect]
     Active Substance: ADALIMUMAB
     Dosage: 1 PEN
     Route: 058
  2. HUMIRA [Suspect]
     Active Substance: ADALIMUMAB
     Indication: COLITIS ULCERATIVE
     Dosage: 4-40MG PENS X1
     Route: 058
  3. HUMIRA [Suspect]
     Active Substance: ADALIMUMAB
     Dosage: 2 PENS X2
     Route: 058

REACTIONS (6)
  - Asthenia [Not Recovered/Not Resolved]
  - Tremor [Recovering/Resolving]
  - Fatigue [Not Recovered/Not Resolved]
  - Fatigue [Unknown]
  - Dysgeusia [Unknown]
  - Cold sweat [Recovering/Resolving]

NARRATIVE: CASE EVENT DATE: 20150428
